FAERS Safety Report 7358647-9 (Version None)
Quarter: 2011Q1

REPORT INFORMATION
  Report Type: 
  Country: None (occurrence: None)
  Receive Date: 20110317
  Receipt Date: 20110304
  Transmission Date: 20110831
  Serious: Yes (Hospitalization)
  Sender: FDA-Public Use
  Company Number: GXKR2007GB03305

PATIENT
  Age: 56 Year
  Sex: Female
  Weight: 33 kg

DRUGS (8)
  1. DIAZEPAM [Suspect]
     Dosage: 5 MG, BID
  2. PROCYCLIDINE HYDROCHLORIDE 2MG TAB [Suspect]
     Dosage: 5 MG, BID
  3. PREDNISOLONE [Concomitant]
     Dosage: 15 MG/DAY
     Dates: start: 19920301
  4. DIAZEPAM [Suspect]
     Indication: AGITATION
     Dosage: 10 MG, QID
     Dates: start: 19920301
  5. FLUPENTIXOL [Concomitant]
     Indication: DEPRESSION
     Dosage: 20 MG, BIW
     Dates: start: 19840101
  6. AZATHIOPRINE [Concomitant]
     Dosage: 25 MG, TID
     Dates: start: 19920301
  7. PROCYCLIDINE HYDROCHLORIDE 2MG TAB [Suspect]
     Indication: AGITATION
     Dosage: 5 MG, TID
     Dates: start: 19920301
  8. HALOPERIDOL [Suspect]
     Dosage: 1.5 MG, UNK
     Dates: start: 19920301

REACTIONS (16)
  - DYSPHAGIA [None]
  - PRODUCTIVE COUGH [None]
  - BRADYKINESIA [None]
  - COGWHEEL RIGIDITY [None]
  - LARYNGEAL INFLAMMATION [None]
  - DYSPHONIA [None]
  - RESTLESSNESS [None]
  - CREPITATIONS [None]
  - EXTRAPYRAMIDAL DISORDER [None]
  - HYPOTENSION [None]
  - AGITATION [None]
  - WEIGHT DECREASED [None]
  - MASKED FACIES [None]
  - MALNUTRITION [None]
  - ASPIRATION [None]
  - NORMOCHROMIC NORMOCYTIC ANAEMIA [None]
